FAERS Safety Report 4741315-7 (Version None)
Quarter: 2005Q3

REPORT INFORMATION
  Report Type: 
  Country: None (occurrence: None)
  Receive Date: 20050810
  Receipt Date: 20050103
  Transmission Date: 20060218
  Serious: No
  Sender: FDA-Public Use
  Company Number: US-GLAXOSMITHKLINE-A0539083A

PATIENT
  Age: 26 Year
  Sex: Female

DRUGS (2)
  1. PAXIL [Suspect]
     Indication: DEPRESSION
     Dosage: 20MG PER DAY
     Route: 048
     Dates: start: 20000101, end: 20041201
  2. NO CONCURRENT MEDICATION [Concomitant]

REACTIONS (4)
  - AFFECT LABILITY [None]
  - DEPRESSION [None]
  - HEADACHE [None]
  - NAUSEA [None]
